FAERS Safety Report 17982567 (Version 1)
Quarter: 2020Q3

REPORT INFORMATION
  Report Type: Spontaneous
  Country: US (occurrence: US)
  Receive Date: 20200703
  Receipt Date: 20200703
  Transmission Date: 20201103
  Serious: Yes (Death)
  Sender: FDA-Public Use
  Company Number: None

PATIENT
  Sex: Female

DRUGS (21)
  1. NYSTOP [Concomitant]
     Active Substance: NYSTATIN
  2. OXYCODONE [Concomitant]
     Active Substance: OXYCODONE
  3. CYCLOBENZAPR [Concomitant]
     Active Substance: CYCLOBENZAPRINE
  4. LETROZOLE. [Concomitant]
     Active Substance: LETROZOLE
  5. OMEPRAZOLE. [Concomitant]
     Active Substance: OMEPRAZOLE
  6. BACLOFEN. [Concomitant]
     Active Substance: BACLOFEN
  7. POT CHLORIDE [Concomitant]
     Active Substance: POTASSIUM CHLORIDE
  8. LORAZEPAM. [Concomitant]
     Active Substance: LORAZEPAM
  9. SENCUSO [Concomitant]
  10. BEVESPI AEROSPHERE [Concomitant]
     Active Substance: FORMOTEROL FUMARATE\GLYCOPYRROLATE
  11. CARVEDILOL. [Concomitant]
     Active Substance: CARVEDILOL
  12. MULTI VITAMIN [Concomitant]
     Active Substance: VITAMINS
  13. ONDANSETRON [Concomitant]
     Active Substance: ONDANSETRON
  14. PRICHLORPER [Concomitant]
  15. IBRANCE [Suspect]
     Active Substance: PALBOCICLIB
     Indication: BREAST CANCER FEMALE
     Dosage: ?          OTHER FREQUENCY:DAILY FOR 21 DAYS;?
     Route: 048
     Dates: start: 19630804
  16. ALBUTEROL. [Concomitant]
     Active Substance: ALBUTEROL
  17. GABAPENTIN. [Concomitant]
     Active Substance: GABAPENTIN
  18. OXYMORPHONE [Concomitant]
     Active Substance: OXYMORPHONE
  19. PRILOSEC [Concomitant]
     Active Substance: OMEPRAZOLE MAGNESIUM
  20. CEPHALEXIN. [Concomitant]
     Active Substance: CEPHALEXIN
  21. LISINOPRIL. [Concomitant]
     Active Substance: LISINOPRIL

REACTIONS (1)
  - Death [None]
